FAERS Safety Report 9455774 (Version 1)
Quarter: 2013Q3

REPORT INFORMATION
  Report Type: Spontaneous
  Country: DE (occurrence: DE)
  Receive Date: 20130813
  Receipt Date: 20130813
  Transmission Date: 20140515
  Serious: Yes (Life-Threatening)
  Sender: FDA-Public Use
  Company Number: DE-BAYER-2013-094858

PATIENT
  Age: 48 Year
  Sex: Male
  Weight: 80 kg

DRUGS (14)
  1. AVALOX [Suspect]
     Indication: PNEUMONIA
     Dosage: 400 MG, TID
     Route: 042
     Dates: start: 20130529, end: 20130531
  2. PREDNISOLON [Concomitant]
     Dosage: 30 MG, QD
     Dates: start: 20130529
  3. ACC [Concomitant]
     Dosage: 1 DF, QD
     Dates: start: 20130529
  4. DHC [Concomitant]
     Dosage: 60 MG, 1/2 DAILY ONCE
     Dates: start: 20130529
  5. FALITHROM [Concomitant]
     Dosage: 1-1/2
     Route: 048
  6. CARBAMAZEPINE [Concomitant]
     Dosage: 1/2-0-1-0
     Route: 048
  7. AMINEURIN [Concomitant]
     Dosage: 1 DF, TID
     Route: 048
  8. ENALAPRIL [Concomitant]
     Dosage: 1 DF, QD
     Route: 048
  9. BISOPROLOL [Concomitant]
     Dosage: 1 DF, QD
     Route: 048
  10. SYMBICORT [Concomitant]
     Dosage: 2 DF, BID
     Route: 048
  11. FUROSEMID [Concomitant]
     Dosage: 1 DF, QD
     Route: 048
  12. INSUMAN RAPID [Concomitant]
  13. LANTUS [Concomitant]
     Dosage: DAILY DOSE 24IU
  14. NEXIUM [Concomitant]
     Dosage: 40 MG, QD
     Route: 042
     Dates: start: 20130531, end: 20130531

REACTIONS (4)
  - Acute hepatic failure [Not Recovered/Not Resolved]
  - Nausea [Not Recovered/Not Resolved]
  - Vomiting [Not Recovered/Not Resolved]
  - Disturbance in attention [Not Recovered/Not Resolved]
